FAERS Safety Report 7353241-8 (Version None)
Quarter: 2011Q1

REPORT INFORMATION
  Report Type: 
  Country: None (occurrence: None)
  Receive Date: 20110315
  Receipt Date: 20110307
  Transmission Date: 20110831
  Serious: Yes (Other)
  Sender: FDA-Public Use
  Company Number: US-KINGPHARMUSA00001-K201100231

PATIENT
  Age: 43 Year
  Sex: Female

DRUGS (4)
  1. TRICOR [Concomitant]
  2. FLECTOR [Suspect]
     Indication: PAIN IN EXTREMITY
     Dosage: 1 PATCH, Q 12 HOURS
     Route: 061
     Dates: start: 20110203, end: 20110305
  3. METFORMIN [Concomitant]
     Indication: DIABETES MELLITUS
  4. NEURONTIN [Concomitant]

REACTIONS (3)
  - MIGRAINE [None]
  - CONVULSION [None]
  - BLOOD GLUCOSE INCREASED [None]
